FAERS Safety Report 4526720-6 (Version None)
Quarter: 2004Q4

REPORT INFORMATION
  Report Type: 
  Country: None (occurrence: None)
  Receive Date: 20041213
  Receipt Date: 20041126
  Transmission Date: 20050328
  Serious: Yes (Hospitalization)
  Sender: FDA-Public Use
  Company Number: 2004BI000258

PATIENT
  Age: 54 Year
  Sex: Female
  Weight: 63.5036 kg

DRUGS (2)
  1. AVONEX [Suspect]
     Indication: MULTIPLE SCLEROSIS
     Dates: end: 19991101
  2. PILL (NOS) [Concomitant]

REACTIONS (5)
  - COLLAPSE OF LUNG [None]
  - DIFFICULTY IN WALKING [None]
  - FALL [None]
  - INTERNAL INJURY [None]
  - WHEELCHAIR USER [None]
